FAERS Safety Report 20107235 (Version 1)
Quarter: 2021Q4

REPORT INFORMATION
  Report Type: Spontaneous
  Country: US (occurrence: US)
  Receive Date: 20211124
  Receipt Date: 20211124
  Transmission Date: 20220303
  Serious: Yes (Hospitalization)
  Sender: FDA-Public Use
  Company Number: US-LUPIN PHARMACEUTICALS INC.-2021-22980

PATIENT
  Age: 5 Month
  Sex: Female

DRUGS (1)
  1. TESTOSTERONE [Suspect]
     Active Substance: TESTOSTERONE
     Indication: Product used for unknown indication
     Dosage: UNK (FORM; CREAM)
     Route: 061

REACTIONS (3)
  - Virilism [Recovered/Resolved]
  - Enlarged clitoris [Recovered/Resolved]
  - Accidental exposure to product by child [Unknown]
